FAERS Safety Report 18212761 (Version 2)
Quarter: 2020Q3

REPORT INFORMATION
  Report Type: Report from Study
  Country: SG (occurrence: SG)
  Receive Date: 20200831
  Receipt Date: 20200902
  Transmission Date: 20201103
  Serious: Yes (Death, Hospitalization)
  Sender: FDA-Public Use
  Company Number: NVSC2019SG094230

PATIENT
  Age: 65 Year
  Sex: Female
  Weight: 58 kg

DRUGS (2)
  1. BYL719 [Suspect]
     Active Substance: ALPELISIB
     Indication: BREAST CANCER METASTATIC
     Dosage: 300 MG, QD (2 MONTHS)
     Route: 048
     Dates: start: 20190614, end: 20190617
  2. BYL719 [Suspect]
     Active Substance: ALPELISIB
     Dosage: 200 MG, QD
     Route: 048
     Dates: start: 20190712

REACTIONS (2)
  - Hyperglycaemia [Recovered/Resolved]
  - Death [Fatal]

NARRATIVE: CASE EVENT DATE: 20190617
